FAERS Safety Report 6177008-1 (Version None)
Quarter: 2009Q2

REPORT INFORMATION
  Report Type: 
  Country: None (occurrence: None)
  Receive Date: 20090501
  Receipt Date: 20090305
  Transmission Date: 20091009
  Serious: Yes (Hospitalization)
  Sender: FDA-Public Use
  Company Number: US-ALEXION-A200900092

PATIENT
  Sex: Female

DRUGS (2)
  1. SOLIRIS [Suspect]
     Indication: PAROXYSMAL NOCTURNAL HAEMOGLOBINURIA
     Dosage: 600 MG, QW
     Route: 042
     Dates: start: 20070628, end: 20070717
  2. SOLIRIS [Suspect]
     Dosage: 900 MG, Q2W
     Route: 042
     Dates: start: 20070731

REACTIONS (14)
  - BLOOD BILIRUBIN INCREASED [None]
  - CHOLELITHIASIS [None]
  - CHROMATURIA [None]
  - DECREASED APPETITE [None]
  - DEHYDRATION [None]
  - GASTRITIS [None]
  - HAEMOGLOBIN DECREASED [None]
  - HAEMOLYTIC ANAEMIA [None]
  - MICROCYTIC ANAEMIA [None]
  - PAIN [None]
  - PYREXIA [None]
  - RENAL CYST [None]
  - URINARY TRACT INFECTION [None]
  - VOMITING [None]
